FAERS Safety Report 18919555 (Version 1)
Quarter: 2021Q1

REPORT INFORMATION
  Report Type: Spontaneous
  Country: FR (occurrence: FR)
  Receive Date: 20210221
  Receipt Date: 20210221
  Transmission Date: 20210420
  Serious: Yes (Hospitalization)
  Sender: FDA-Public Use
  Company Number: FR-JNJFOC-20210233474

PATIENT
  Age: 67 Year
  Sex: Female
  Weight: 110 kg

DRUGS (4)
  1. XENETIX [Suspect]
     Active Substance: IOBITRIDOL
     Indication: ANGIOGRAM
     Dosage: 85 ML, ONCE
     Route: 042
     Dates: start: 20210126, end: 20210126
  2. XARELTO [Suspect]
     Active Substance: RIVAROXABAN
     Indication: PULMONARY EMBOLISM
     Dosage: 30 MG, QD
     Route: 048
     Dates: start: 20210128, end: 20210203
  3. CEFTRIAXONE ARROW [Suspect]
     Active Substance: CEFTRIAXONE SODIUM
     Indication: URINARY TRACT INFECTION
     Dosage: 1 G, QD
     Route: 042
     Dates: start: 20210130, end: 20210203
  4. KAYEXALATE [Suspect]
     Active Substance: SODIUM POLYSTYRENE SULFONATE
     Indication: HYPERKALAEMIA
     Dosage: 1 DF, ONCE
     Route: 048
     Dates: start: 20210131, end: 20210131

REACTIONS (1)
  - Acute generalised exanthematous pustulosis [Not Recovered/Not Resolved]

NARRATIVE: CASE EVENT DATE: 20210201
